FAERS Safety Report 20074096 (Version 1)
Quarter: 2021Q4

REPORT INFORMATION
  Report Type: Spontaneous
  Country: FR (occurrence: FR)
  Receive Date: 20211116
  Receipt Date: 20211116
  Transmission Date: 20220304
  Serious: Yes (Other)
  Sender: FDA-Public Use
  Company Number: FR-GUERBET-FR-20210300

PATIENT
  Age: 54 Year
  Sex: Male

DRUGS (5)
  1. DOXORUBICIN HYDROCHLORIDE [Suspect]
     Active Substance: DOXORUBICIN HYDROCHLORIDE
     Indication: Transcatheter arterial chemoembolisation
     Dosage: UNK
     Route: 013
  2. DOXORUBICIN HYDROCHLORIDE [Suspect]
     Active Substance: DOXORUBICIN HYDROCHLORIDE
     Indication: Therapeutic embolisation
     Dosage: UNK
     Route: 013
  3. DOXORUBICIN HYDROCHLORIDE [Suspect]
     Active Substance: DOXORUBICIN HYDROCHLORIDE
     Dosage: UNK
     Route: 013
  4. LIPIODOL [Suspect]
     Active Substance: ETHIODIZED OIL
     Indication: Transcatheter arterial chemoembolisation
     Route: 013
  5. LIPIODOL [Suspect]
     Active Substance: ETHIODIZED OIL
     Dosage: UNK
     Route: 013

REACTIONS (2)
  - Biliary dilatation [Recovered/Resolved]
  - Biloma [Recovered/Resolved]
